FAERS Safety Report 8346905-0 (Version None)
Quarter: 2012Q2

REPORT INFORMATION
  Report Type: 
  Country: None (occurrence: None)
  Receive Date: 20120509
  Receipt Date: 20120503
  Transmission Date: 20120825
  Serious: Yes (Hospitalization, Other)
  Sender: FDA-Public Use
  Company Number: US-SANOFI-AVENTIS-2012SA007477

PATIENT
  Age: 73 Year
  Sex: Female

DRUGS (26)
  1. CISPLATIN [Suspect]
     Indication: NON-SMALL CELL LUNG CANCER STAGE IV
     Route: 065
     Dates: start: 20120118, end: 20120128
  2. ERLOTINIB HYDROCHLORIDE [Suspect]
     Indication: NON-SMALL CELL LUNG CANCER STAGE IV
     Route: 048
     Dates: start: 20120118, end: 20120128
  3. LISINOPRIL AND HYDROCHLOROTHIAZIDE [Suspect]
     Route: 065
  4. LORAZEPAM [Concomitant]
     Dosage: FREQUENCY: Q6H/PRN
     Route: 042
     Dates: start: 20120127
  5. PROMETHAZINE [Concomitant]
     Dosage: Q4H/PRN
     Route: 042
     Dates: start: 20120127
  6. SODIUM CHLORIDE [Concomitant]
     Dosage: STK-MED/O
     Route: 042
     Dates: start: 20120127, end: 20120127
  7. LISINOPRIL AND HYDROCHLOROTHIAZIDE [Suspect]
     Indication: HYPERTENSION
     Route: 065
  8. DEXTROSE [Concomitant]
     Route: 042
     Dates: start: 20120127, end: 20120128
  9. LEVOTHYROXINE SODIUM [Concomitant]
  10. PANTOPRAZOLE SODIUM [Concomitant]
     Dosage: FREQUENCY: ACD
     Route: 048
     Dates: start: 20120130
  11. PIPERACILLIN [Concomitant]
     Dosage: STK-MED/O
     Route: 042
     Dates: start: 20120127, end: 20120127
  12. DIPHENHYDRAMINE HCL [Concomitant]
     Dosage: FREQUENCY: 1.DO/NR
     Route: 042
     Dates: start: 20120127, end: 20120128
  13. SODIUM CHLORIDE [Concomitant]
     Dosage: STK-MED/O
     Route: 042
     Dates: start: 20120127, end: 20120127
  14. CISPLATIN [Suspect]
     Route: 065
     Dates: start: 20120202
  15. SODIUM CHLORIDE [Concomitant]
     Dosage: STK-MED/O
     Route: 042
     Dates: start: 20120127, end: 20120127
  16. FENTANYL CITRATE [Concomitant]
     Dosage: FREQUENCY: Q4H/PRN
     Route: 042
     Dates: start: 20120127
  17. DOCETAXEL [Suspect]
     Indication: NON-SMALL CELL LUNG CANCER STAGE IV
     Route: 065
     Dates: start: 20120118, end: 20120128
  18. DOCETAXEL [Suspect]
     Route: 065
     Dates: start: 20120202
  19. MORPHINE SULFATE [Concomitant]
     Dosage: STK-MED/O
     Route: 042
     Dates: start: 20120127, end: 20120127
  20. ACETAMINOPHEN AND HYDROCODONE BITARTRATE [Concomitant]
  21. ALPRAZOLAM [Concomitant]
  22. ERLOTINIB HYDROCHLORIDE [Suspect]
     Dosage: DOSE REDUCED
     Route: 048
     Dates: start: 20120202
  23. PANTOPRAZOLE [Concomitant]
     Route: 042
     Dates: start: 20120128
  24. TEMAZEPAM [Concomitant]
     Dosage: HS/PRN
     Route: 048
     Dates: start: 20120127
  25. ONDANSETRON [Concomitant]
     Dosage: STK-MED/O
     Route: 042
     Dates: start: 20120127, end: 20120127
  26. ZOFRAN [Concomitant]

REACTIONS (13)
  - INSOMNIA [None]
  - GASTROENTERITIS [None]
  - RENAL FAILURE ACUTE [None]
  - DEHYDRATION [None]
  - VOMITING [None]
  - MUSCLE SPASMS [None]
  - DECREASED APPETITE [None]
  - PNEUMONIA [None]
  - MALAISE [None]
  - PSEUDOMONAS TEST POSITIVE [None]
  - MALNUTRITION [None]
  - WEIGHT DECREASED [None]
  - NEOPLASM MALIGNANT [None]
